FAERS Safety Report 10040830 (Version 1)
Quarter: 2014Q1

REPORT INFORMATION
  Report Type: Spontaneous
  Country: US (occurrence: None)
  Receive Date: 20140326
  Receipt Date: 20140326
  Transmission Date: 20141002
  Serious: Yes (Disabling)
  Sender: FDA-Public Use
  Company Number: None

PATIENT
  Age: 45 Year
  Sex: Female
  Weight: 72.58 kg

DRUGS (1)
  1. HYDROCODONE/APAP [Suspect]
     Indication: MIGRAINE
     Route: 048

REACTIONS (2)
  - Liver disorder [None]
  - Therapy change [None]
